FAERS Safety Report 16564553 (Version 1)
Quarter: 2019Q3

REPORT INFORMATION
  Report Type: Spontaneous
  Country: DE (occurrence: DE)
  Receive Date: 20190712
  Receipt Date: 20190712
  Transmission Date: 20191004
  Serious: Yes (Hospitalization)
  Sender: FDA-Public Use
  Company Number: DE-TEVA-2019-DE-1075708

PATIENT
  Age: 18 Year
  Sex: Male

DRUGS (9)
  1. ADRIAMYCIN [Suspect]
     Active Substance: DOXORUBICIN HYDROCHLORIDE
     Dosage: NK MG, MOST RECENTLY ON 09.05.2017
  2. PROCARBAZIN [Suspect]
     Active Substance: PROCARBAZINE
     Dosage: NK MG, MOST RECENTLY ON 09.05.2017
  3. VINCRISTIN [Suspect]
     Active Substance: VINCRISTINE
     Dosage: NK MG, MOST RECENTLY ON 09.05.2017
  4. CYCLOPHOSPHAMID [Suspect]
     Active Substance: CYCLOPHOSPHAMIDE
     Dosage: NK MG, MOST RECENTLY ON 09.05.2017
  5. ETOPOSID [Suspect]
     Active Substance: ETOPOSIDE
     Dosage: NK MG, MOST RECENTLY ON 09.05.2017
  6. BLEOMYCIN [Suspect]
     Active Substance: BLEOMYCIN SULFATE
     Dosage: NK MG, MOST RECENTLY ON 09.05.2017
  7. COLECALCIFEROL [Concomitant]
     Active Substance: CHOLECALCIFEROL
     Dosage: 1000 IE, 1-0-0-0
  8. CIPROFLOXACIN. [Concomitant]
     Active Substance: CIPROFLOXACIN
     Dosage: 500 MG, SOLD ON 16.05.2017
  9. PREDNISOLON [Suspect]
     Active Substance: PREDNISOLONE
     Dosage: NK MG, MOST RECENTLY ON 09.05.2017

REACTIONS (3)
  - Productive cough [Unknown]
  - Cough [Unknown]
  - Pyrexia [Unknown]
